FAERS Safety Report 5071296-0 (Version None)
Quarter: 2006Q3

REPORT INFORMATION
  Report Type: 
  Country: None (occurrence: None)
  Receive Date: 20060804
  Receipt Date: 20060630
  Transmission Date: 20061208
  Serious: Yes (Other)
  Sender: FDA-Public Use
  Company Number: FR-ROCHE-453799

PATIENT
  Age: 26 Year
  Sex: Female
  Weight: 52 kg

DRUGS (3)
  1. ACCUTANE [Suspect]
     Indication: ACNE
     Dosage: SELF-MEDICATION.
     Route: 048
     Dates: start: 20060602, end: 20060602
  2. ACCUTANE [Suspect]
     Route: 048
  3. PHARMATEX [Concomitant]
     Indication: CONTRACEPTION
     Dosage: REPORTED AS PHARMATEX SPERMICIDE OVUM.
     Route: 067

REACTIONS (4)
  - ABORTION INDUCED [None]
  - DRUG EXPOSURE DURING PREGNANCY [None]
  - PREGNANCY [None]
  - SELF-MEDICATION [None]
